FAERS Safety Report 23436640 (Version 1)
Quarter: 2024Q1

REPORT INFORMATION
  Report Type: Spontaneous
  Country: CN (occurrence: None)
  Receive Date: 20240124
  Receipt Date: 20240124
  Transmission Date: 20240410
  Serious: Yes (Other)
  Sender: FDA-Public Use
  Company Number: CN-ROCHE-3494213

PATIENT
  Age: 61 Year
  Sex: Female

DRUGS (4)
  1. AVASTIN [Suspect]
     Active Substance: BEVACIZUMAB
     Indication: Small intestine carcinoma
     Route: 041
     Dates: start: 20231102, end: 20231102
  2. GEMCITABINE [Suspect]
     Active Substance: GEMCITABINE
     Indication: Small intestine carcinoma
     Route: 041
     Dates: start: 20231102, end: 20231102
  3. OXALIPLATIN [Suspect]
     Active Substance: OXALIPLATIN
     Indication: Small intestine carcinoma
     Route: 041
     Dates: start: 20231102, end: 20231102
  4. TISLELIZUMAB [Suspect]
     Active Substance: TISLELIZUMAB
     Indication: Small intestine carcinoma
     Route: 041
     Dates: start: 20231102, end: 20231102

REACTIONS (3)
  - Myelosuppression [Recovering/Resolving]
  - Asthenia [Recovering/Resolving]
  - Decreased appetite [Recovering/Resolving]

NARRATIVE: CASE EVENT DATE: 20231103
